FAERS Safety Report 21134876 (Version 1)
Quarter: 2022Q3

REPORT INFORMATION
  Report Type: Spontaneous
  Country: ES (occurrence: ES)
  Receive Date: 20220727
  Receipt Date: 20220727
  Transmission Date: 20221026
  Serious: Yes (Other)
  Sender: FDA-Public Use
  Company Number: ES-AEMPS-977890

PATIENT
  Age: 34 Year
  Sex: Male
  Weight: 125 kg

DRUGS (3)
  1. CETIRIZINE [Suspect]
     Active Substance: CETIRIZINE HYDROCHLORIDE
     Indication: Cerumen removal
     Dosage: 10 MILLIGRAM,(UNA PASTILLA AL D?A)ONCE A DAY
     Route: 048
     Dates: start: 20210817
  2. ARCOXIA [Concomitant]
     Active Substance: ETORICOXIB
     Indication: Back pain
     Dosage: 1 DOSAGE FORM, (UNA PASTILLA AL DIA)ONCE A DAY
     Route: 065
     Dates: start: 20210719
  3. Menaderm [Concomitant]
     Indication: Urticaria
     Dosage: UNK,APLICACI?N DE LA POMADA EN LA ZONA A TRATAR DOS VECES AL DIA TWO TIMES A DAY
     Route: 065
     Dates: start: 20210817

REACTIONS (1)
  - Paraesthesia [Not Recovered/Not Resolved]

NARRATIVE: CASE EVENT DATE: 20210817
